FAERS Safety Report 8898938 (Version 1)
Quarter: 2012Q4

REPORT INFORMATION
  Report Type: 
  Country: US (occurrence: US)
  Receive Date: 20121108
  Receipt Date: 20121108
  Transmission Date: 20130627
  Serious: No
  Sender: FDA-Public Use
  Company Number: US-AMGEN-USASP2012034016

PATIENT
  Sex: Female

DRUGS (5)
  1. ENBREL [Suspect]
     Indication: PSORIASIS
     Dosage: UNK
  2. XANAX [Concomitant]
     Dosage: 1 mg, UNK
  3. ALEVE [Concomitant]
     Dosage: 220 mg, UNK
  4. ASPIRIN [Concomitant]
     Dosage: 81 mg, UNK
  5. CALCIPOTRIENE [Concomitant]
     Dosage: 0.005 %, UNK

REACTIONS (1)
  - Drug ineffective [Unknown]
